FAERS Safety Report 11107010 (Version 1)
Quarter: 2015Q2

REPORT INFORMATION
  Report Type: Spontaneous
  Country: TR (occurrence: None)
  Receive Date: 20150508
  Receipt Date: 20150508
  Transmission Date: 20150821
  Serious: Yes (Other)
  Sender: FDA-Public Use
  Company Number: 2015/039

PATIENT
  Age: 30 Year
  Sex: Female

DRUGS (1)
  1. MODAFINIL (NO PREF. NAME) [Suspect]
     Active Substance: MODAFINIL
     Indication: HYPERSOMNIA
     Dosage: 200 MG/DAY, UNK + UNK?APPROXIMATELY 15 DAYS

REACTIONS (1)
  - Female orgasmic disorder [None]
